FAERS Safety Report 6016365-3 (Version None)
Quarter: 2008Q4

REPORT INFORMATION
  Report Type: 
  Country: None (occurrence: None)
  Receive Date: 20081222
  Receipt Date: 20081215
  Transmission Date: 20090506
  Serious: Yes (Death)
  Sender: FDA-Public Use
  Company Number: US-PFIZER INC-2008153596

PATIENT
  Age: 51 Year
  Sex: Female

DRUGS (7)
  1. ZIPRASIDONE HCL [Suspect]
  2. DOXEPIN HCL [Suspect]
  3. METFORMIN HCL [Suspect]
  4. ZOLPIDEM TARTRATE [Suspect]
  5. TRAMADOL HCL [Suspect]
  6. VENLAFAXINE [Suspect]
  7. NORTRIPTYLINE [Suspect]

REACTIONS (1)
  - COMPLETED SUICIDE [None]
